FAERS Safety Report 8502357-9 (Version None)
Quarter: 2012Q3

REPORT INFORMATION
  Report Type: 
  Country: None (occurrence: None)
  Receive Date: 20120702
  Receipt Date: 20120620
  Transmission Date: 20120928
  Serious: Yes (Hospitalization, Other)
  Sender: FDA-Public Use
  Company Number: AUR-APL-2012-02524

PATIENT
  Sex: Female

DRUGS (8)
  1. EFFEXOR XR [Suspect]
     Indication: DEPRESSION
     Dosage: 75 MG (75 MG, 1 IN 1 D), ORAL, 150 MG (150 MG, 1 IN 1 D),ORAL
     Route: 048
     Dates: start: 20120101, end: 20120531
  2. EFFEXOR XR [Suspect]
     Indication: DEPRESSION
     Dosage: 75 MG (75 MG, 1 IN 1 D), ORAL, 150 MG (150 MG, 1 IN 1 D),ORAL
     Route: 048
     Dates: start: 20120301
  3. TOPAMAX [Suspect]
     Indication: CONVULSION
     Dates: start: 20070101
  4. VITAMINS (VITAMINS NOS) [Concomitant]
  5. CALCIUM CARBONATE [Concomitant]
  6. VENLAFAXINE HCL [Suspect]
     Indication: PRODUCT USED FOR UNKNOWN INDICATION
  7. EFFEXOR [Suspect]
     Indication: DEPRESSION
     Dosage: 37.5 MG (37.5 MG, 1IN 1 D),ORAL
     Route: 048
     Dates: start: 20120101, end: 20120301
  8. LISINOPRIL [Suspect]
     Indication: HYPERTENSION

REACTIONS (2)
  - PETIT MAL EPILEPSY [None]
  - GRAND MAL CONVULSION [None]
